FAERS Safety Report 9743536 (Version 1)
Quarter: 2013Q4

REPORT INFORMATION
  Report Type: Spontaneous
  Country: US (occurrence: US)
  Receive Date: 20131210
  Receipt Date: 20131210
  Transmission Date: 20140711
  Serious: Yes (Other)
  Sender: FDA-Public Use
  Company Number: US-TEVA-383888USA

PATIENT
  Age: 35 Year
  Sex: Female
  Weight: 87.17 kg

DRUGS (3)
  1. PARAGARD 380A [Suspect]
     Indication: CONTRACEPTION
     Route: 015
     Dates: start: 20110705
  2. PROZAC [Concomitant]
     Indication: DEPRESSION
     Dosage: 20 MILLIGRAM DAILY;
     Route: 048
     Dates: start: 2005
  3. FENTERMINE [Concomitant]
     Indication: WEIGHT DECREASED
     Dates: start: 20130104

REACTIONS (4)
  - Device dislocation [Not Recovered/Not Resolved]
  - Vaginal haemorrhage [Not Recovered/Not Resolved]
  - Abdominal distension [Not Recovered/Not Resolved]
  - Uterine spasm [Not Recovered/Not Resolved]
